FAERS Safety Report 4661395-7 (Version None)
Quarter: 2005Q2

REPORT INFORMATION
  Report Type: 
  Country: None (occurrence: None)
  Receive Date: 20050513
  Receipt Date: 20050504
  Transmission Date: 20051028
  Serious: Yes (Hospitalization)
  Sender: FDA-Public Use
  Company Number: US-SANOFI-SYNTHELABO-F01200500696

PATIENT
  Sex: Male

DRUGS (3)
  1. OXALIPLATIN [Suspect]
     Indication: COLORECTAL CANCER METASTATIC
     Route: 042
     Dates: start: 20031023, end: 20031023
  2. CAPECITABINE [Suspect]
     Dosage: 1150 MG TWICE DAILY FOR 2 WEEKS
     Route: 048
     Dates: start: 20031023, end: 20031106
  3. ERLOTINIB [Suspect]
     Route: 048
     Dates: start: 20030905, end: 20031113

REACTIONS (2)
  - DISEASE PROGRESSION [None]
  - ENTERITIS [None]
